FAERS Safety Report 6278526-8 (Version None)
Quarter: 2009Q3

REPORT INFORMATION
  Report Type: 
  Country: None (occurrence: None)
  Receive Date: 20090722
  Receipt Date: 20080619
  Transmission Date: 20100115
  Serious: No
  Sender: FDA-Public Use
  Company Number: US-BAUSCH-2008BL002750

PATIENT
  Age: 35 Year
  Sex: Male
  Weight: 95 kg

DRUGS (2)
  1. OPCON-A [Suspect]
     Indication: EYE PRURITUS
     Route: 047
     Dates: start: 20080619, end: 20080619
  2. CLARITIN /USA/ [Concomitant]
     Indication: SEASONAL ALLERGY
     Route: 048

REACTIONS (4)
  - DRUG INEFFECTIVE [None]
  - INSTILLATION SITE IRRITATION [None]
  - MYDRIASIS [None]
  - VISION BLURRED [None]
